FAERS Safety Report 10862033 (Version 2)
Quarter: 2015Q1

REPORT INFORMATION
  Report Type: Report from Study
  Country: BR (occurrence: BR)
  Receive Date: 20150224
  Receipt Date: 20150310
  Transmission Date: 20150721
  Serious: Yes (Disabling, Other)
  Sender: FDA-Public Use
  Company Number: PHHY2015BR008424

PATIENT
  Age: 75 Year
  Sex: Female
  Weight: 69 kg

DRUGS (5)
  1. SANDOSTATIN LAR DEPOT [Suspect]
     Active Substance: OCTREOTIDE ACETATE
     Dosage: 1 DF (30 MG), EACH 28 DAYS
     Route: 030
     Dates: start: 20150304
  2. REVANGE [Concomitant]
     Indication: SPINAL PAIN
     Dosage: 1 DF (375 MG), PRN
     Route: 048
  3. CABERTRIX [Concomitant]
     Indication: PITUITARY TUMOUR
     Dosage: 1 DF (5 MG), QHS FROM MONDAY TO FRIDAY
     Route: 048
  4. SANDOSTATIN LAR DEPOT [Suspect]
     Active Substance: OCTREOTIDE ACETATE
     Indication: ACROMEGALY
     Dosage: 1 DF (AMPOULE), QMO
     Route: 030
  5. SANDOSTATIN LAR DEPOT [Suspect]
     Active Substance: OCTREOTIDE ACETATE
     Indication: PITUITARY TUMOUR
     Dosage: 1 DF (30 MG), EACH 28 DAYS
     Route: 030

REACTIONS (7)
  - Intervertebral disc space narrowing [Not Recovered/Not Resolved]
  - Weight decreased [Unknown]
  - Pain [Recovering/Resolving]
  - Gait disturbance [Recovering/Resolving]
  - Fall [Recovering/Resolving]
  - Swelling [Unknown]
  - Body height decreased [Unknown]

NARRATIVE: CASE EVENT DATE: 20141228
